FAERS Safety Report 19959582 (Version 1)
Quarter: 2021Q4

REPORT INFORMATION
  Report Type: Spontaneous
  Country: ES (occurrence: ES)
  Receive Date: 20211015
  Receipt Date: 20211015
  Transmission Date: 20220303
  Serious: Yes (Death, Other)
  Sender: FDA-Public Use
  Company Number: ES-PFIZER INC-2021711029

PATIENT
  Age: 58 Year
  Sex: Male

DRUGS (4)
  1. VORICONAZOLE [Suspect]
     Active Substance: VORICONAZOLE
     Indication: Aspergillus infection
     Dosage: 250 MILLIGRAM, QD
  2. VORICONAZOLE [Suspect]
     Active Substance: VORICONAZOLE
     Indication: Endocarditis
  3. CASPOFUNGIN [Suspect]
     Active Substance: CASPOFUNGIN
     Indication: Endocarditis
     Dosage: 120 MILLIGRAM, QD (70+50 MG/DAY)
  4. CASPOFUNGIN [Suspect]
     Active Substance: CASPOFUNGIN
     Indication: Aspergillus infection

REACTIONS (1)
  - Drug ineffective [Fatal]
